FAERS Safety Report 19082249 (Version 1)
Quarter: 2021Q2

REPORT INFORMATION
  Report Type: Spontaneous
  Country: US (occurrence: US)
  Receive Date: 20210401
  Receipt Date: 20210401
  Transmission Date: 20210717
  Serious: No
  Sender: FDA-Public Use
  Company Number: US-STRIDES ARCOLAB LIMITED-2021SP001509

PATIENT
  Age: 3 Decade
  Sex: Female

DRUGS (3)
  1. SODIUM CHLORIDE. [Concomitant]
     Active Substance: SODIUM CHLORIDE
     Indication: ADMINISTRATION SITE ATROPHY
     Dosage: 30 MILLILITER EVERY MONTH
     Route: 065
  2. TRIAMCINOLONE [Concomitant]
     Active Substance: TRIAMCINOLONE
     Indication: PRODUCT USED FOR UNKNOWN INDICATION
     Dosage: 40 MILLIGRAM PER MILLILITRE
     Route: 030
  3. LIDOCAINE. [Suspect]
     Active Substance: LIDOCAINE
     Indication: ADMINISTRATION SITE ATROPHY
     Dosage: UNK
     Route: 065

REACTIONS (1)
  - Off label use [Unknown]
